FAERS Safety Report 21494027 (Version 6)
Quarter: 2023Q1

REPORT INFORMATION
  Report Type: Report from Study
  Country: US (occurrence: US)
  Receive Date: 20221021
  Receipt Date: 20230327
  Transmission Date: 20230417
  Serious: Yes (Other)
  Sender: FDA-Public Use
  Company Number: US-002147023-NVSC2022US236987

PATIENT
  Sex: Female

DRUGS (1)
  1. KESIMPTA [Suspect]
     Active Substance: OFATUMUMAB
     Indication: Multiple sclerosis
     Dosage: UNK, QMO (30 DAYS)
     Route: 058
     Dates: start: 20220822

REACTIONS (7)
  - Hypothyroidism [Unknown]
  - Dysgraphia [Unknown]
  - Productive cough [Unknown]
  - Fatigue [Recovering/Resolving]
  - Nasopharyngitis [Unknown]
  - Arthralgia [Recovering/Resolving]
  - Fall [Not Recovered/Not Resolved]

NARRATIVE: CASE EVENT DATE: 20220101
